FAERS Safety Report 10373027 (Version 1)
Quarter: 2014Q3

REPORT INFORMATION
  Report Type: Spontaneous
  Country: US (occurrence: US)
  Receive Date: 20140808
  Receipt Date: 20140808
  Transmission Date: 20150326
  Serious: No
  Sender: FDA-Public Use
  Company Number: US-BRISTOL-MYERS SQUIBB COMPANY-19926583

PATIENT
  Age: 74 Year
  Sex: Male

DRUGS (5)
  1. METFORMIN [Concomitant]
     Active Substance: METFORMIN HYDROCHLORIDE
  2. FINASTERIDE. [Suspect]
     Active Substance: FINASTERIDE
  3. GLYBURIDE. [Concomitant]
     Active Substance: GLYBURIDE
  4. TERAZOSIN [Concomitant]
     Active Substance: TERAZOSIN\TERAZOSIN HYDROCHLORIDE
  5. SPRYCEL [Suspect]
     Active Substance: DASATINIB

REACTIONS (2)
  - Nipple pain [Unknown]
  - Breast enlargement [Unknown]

NARRATIVE: CASE EVENT DATE: 2013
